FAERS Safety Report 8762822 (Version 5)
Quarter: 2012Q4

REPORT INFORMATION
  Report Type: 
  Country: JP (occurrence: JP)
  Receive Date: 20120830
  Receipt Date: 20121023
  Transmission Date: 20130627
  Serious: Yes (Life-Threatening, Hospitalization)
  Sender: FDA-Public Use
  Company Number: JP-PFIZER INC-2012193824

PATIENT
  Age: 83 Year
  Sex: Female
  Weight: 50.3 kg

DRUGS (12)
  1. LYRICA [Suspect]
     Indication: PAIN
     Dosage: 75 mg, 2x/day
     Route: 048
     Dates: start: 20120717, end: 20120731
  2. CELECOX [Suspect]
     Indication: PAIN
     Dosage: 100 mg, 2x/day
     Route: 048
     Dates: start: 20120717, end: 20120731
  3. DEPAS [Suspect]
     Indication: DEPRESSION
     Dosage: 0.5 mg, 3x/day
     Route: 048
     Dates: start: 20080226, end: 20120731
  4. ALDACTONE-A [Concomitant]
     Indication: HYPOKALAEMIA
     Dosage: 50 mg, 1x/day
     Route: 048
     Dates: start: 20010110, end: 20120731
  5. TAKEPRON [Concomitant]
     Indication: GASTROOESOPHAGEAL REFLUX DISEASE
     Dosage: 15 mg, 1x/day
     Route: 048
     Dates: start: 20050217
  6. THYRADIN [Concomitant]
     Indication: HYPOTHYROIDISM
     Dosage: 25 mg, 1x/day
     Route: 048
     Dates: start: 20050217
  7. REZALTAS [Concomitant]
     Indication: ESSENTIAL HYPERTENSION
     Dosage: 1 DF, 1x/day
     Route: 048
     Dates: start: 20111129, end: 20120731
  8. NATRIX [Concomitant]
     Indication: ESSENTIAL HYPERTENSION
     Dosage: 1 mg, 1x/day
     Route: 048
     Dates: start: 20050217, end: 20120731
  9. HYPEN [Concomitant]
     Indication: PAIN
     Dosage: 200 mg, as needed
     Route: 048
     Dates: start: 20050217, end: 20120731
  10. MOHRUS [Concomitant]
     Indication: PAIN
     Dosage: 20 mg, 1x/day
     Route: 062
     Dates: start: 20050217, end: 20120731
  11. MUCOSTA [Concomitant]
     Indication: GASTRITIS
     Dosage: 100 mg, 3x/day
     Route: 048
     Dates: start: 19990812, end: 20120731
  12. BIOFERMIN [Concomitant]
     Indication: ENTEROCOLITIS
     Dosage: 1 g, 3x/day
     Route: 048
     Dates: start: 20010110, end: 20120731

REACTIONS (2)
  - Hyperkalaemia [Recovered/Resolved]
  - Somnolence [Recovered/Resolved]
